FAERS Safety Report 9222864 (Version 2)
Quarter: 2013Q4

REPORT INFORMATION
  Report Type: Spontaneous
  Country: GB (occurrence: GB)
  Receive Date: 20130410
  Receipt Date: 20131028
  Transmission Date: 20140711
  Serious: Yes (Disabling, Other)
  Sender: FDA-Public Use
  Company Number: GB-B.I. PHARMACEUTICALS,INC./RIDGEFIELD-2013-UK-00850UK

PATIENT
  Age: 64 Year
  Sex: Male
  Weight: 76.2 kg

DRUGS (8)
  1. PRADAXA [Suspect]
     Dosage: 300 MG
     Dates: start: 20130322, end: 20130325
  2. ALLOPURINOL [Concomitant]
     Dates: start: 20121005
  3. AMIAS [Concomitant]
     Dates: start: 20121203
  4. AMLODIPINE [Concomitant]
     Dates: start: 20121119
  5. BISOPROLOL [Concomitant]
     Dates: start: 20130124
  6. COLCHICINE [Concomitant]
     Dates: start: 20121203
  7. QUININE [Concomitant]
     Dates: start: 20121218
  8. WARFARIN SODIUM [Concomitant]
     Dates: start: 20130124

REACTIONS (1)
  - Arthritis [Recovered/Resolved]
